FAERS Safety Report 23324814 (Version 3)
Quarter: 2025Q3

REPORT INFORMATION
  Report Type: Spontaneous
  Country: CA (occurrence: CA)
  Receive Date: 20231221
  Receipt Date: 20250730
  Transmission Date: 20251020
  Serious: Yes (Other)
  Sender: PFIZER
  Company Number: CA-PFIZER INC-202300219433

PATIENT
  Age: 27 Year
  Sex: Female
  Weight: 91 kg

DRUGS (16)
  1. RUXIENCE [Suspect]
     Active Substance: RITUXIMAB-PVVR
     Indication: Granulomatosis with polyangiitis
     Route: 042
     Dates: start: 20230630, end: 20230630
  2. RUXIENCE [Suspect]
     Active Substance: RITUXIMAB-PVVR
     Route: 042
     Dates: start: 20231229, end: 20231229
  3. RUXIENCE [Suspect]
     Active Substance: RITUXIMAB-PVVR
     Route: 042
     Dates: start: 20240628, end: 20240628
  4. RUXIENCE [Suspect]
     Active Substance: RITUXIMAB-PVVR
     Route: 042
     Dates: start: 20250108, end: 20250108
  5. RUXIENCE [Suspect]
     Active Substance: RITUXIMAB-PVVR
     Route: 042
     Dates: start: 20250725, end: 20250725
  6. AMLODIPINE [Concomitant]
     Active Substance: AMLODIPINE BESYLATE
  7. BISOPROLOL [Concomitant]
     Active Substance: BISOPROLOL
  8. DISODIUM FUMARATE [Concomitant]
     Active Substance: DISODIUM FUMARATE
  9. FUROSEMIDE [Concomitant]
     Active Substance: FUROSEMIDE
  10. HYDRALAZINE [Concomitant]
     Active Substance: HYDRALAZINE HYDROCHLORIDE
  11. NITROGLYCERIN [Concomitant]
     Active Substance: NITROGLYCERIN
  12. PREDNISONE [Concomitant]
     Active Substance: PREDNISONE
  13. SODIUM BICARBONATE [Concomitant]
     Active Substance: SODIUM BICARBONATE
  14. SPIRONOLACTONE [Concomitant]
     Active Substance: SPIRONOLACTONE
  15. TERAZOSIN [Concomitant]
     Active Substance: TERAZOSIN HYDROCHLORIDE
  16. DILTIAZEM HYDROCHLORIDE [Concomitant]
     Active Substance: DILTIAZEM HYDROCHLORIDE

REACTIONS (3)
  - Renal disorder [Unknown]
  - Off label use [Unknown]
  - Inappropriate schedule of product administration [Unknown]

NARRATIVE: CASE EVENT DATE: 20230101
